FAERS Safety Report 5860274-7 (Version None)
Quarter: 2008Q3

REPORT INFORMATION
  Report Type: 
  Country: None (occurrence: None)
  Receive Date: 20080827
  Receipt Date: 20070821
  Transmission Date: 20090109
  Serious: No
  Sender: FDA-Public Use
  Company Number: US-ABBOTT-07P-163-0378494-00

PATIENT
  Sex: Male
  Weight: 71.278 kg

DRUGS (13)
  1. COATED PDS [Suspect]
     Indication: HIGH DENSITY LIPOPROTEIN DECREASED
     Route: 048
     Dates: start: 20070816
  2. MOMETASONE FUROATE [Concomitant]
     Indication: HYPERSENSITIVITY
     Route: 045
  3. LANSOPRAZOLE [Concomitant]
     Indication: HIATUS HERNIA
     Route: 048
     Dates: start: 19770101
  4. ANOTHER MEDICATION [Concomitant]
     Indication: HIATUS HERNIA
     Route: 048
  5. ATENOLOL [Concomitant]
     Indication: CARDIAC DISORDER
     Route: 048
  6. ACETYLSALICYLIC ACID SRT [Concomitant]
     Indication: DRUG USE FOR UNKNOWN INDICATION
     Route: 048
  7. MELOXICAM [Concomitant]
     Indication: ARTHRITIS
     Route: 048
  8. CETIRIZINE HYDROCHLORIDE [Concomitant]
     Indication: HYPERSENSITIVITY
     Route: 048
  9. SIMVASTATIN [Concomitant]
     Indication: BLOOD CHOLESTEROL
     Route: 048
  10. SIMVASTATIN [Concomitant]
     Route: 048
  11. ATROVENT 0.06% SPRAY [Concomitant]
     Indication: HYPERSENSITIVITY
     Route: 045
  12. AMLODIPINE [Concomitant]
     Indication: CARDIAC DISORDER
     Route: 048
  13. MORNIFLUMATE [Concomitant]
     Indication: PROSTATIC DISORDER
     Route: 048

REACTIONS (7)
  - ABNORMAL DREAMS [None]
  - FLUSHING [None]
  - HOT FLUSH [None]
  - MUSCLE SPASMS [None]
  - PARAESTHESIA [None]
  - PRURITUS [None]
  - SENSORY DISTURBANCE [None]
